FAERS Safety Report 15809136 (Version 6)
Quarter: 2019Q3

REPORT INFORMATION
  Report Type: Report from Study
  Country: US (occurrence: US)
  Receive Date: 20190110
  Receipt Date: 20190925
  Transmission Date: 20191004
  Serious: Yes (Hospitalization, Other)
  Sender: FDA-Public Use
  Company Number: US-ACTELION-A-NJ2019-184756

PATIENT
  Sex: Female
  Weight: 90.7 kg

DRUGS (3)
  1. UPTRAVI [Suspect]
     Active Substance: SELEXIPAG
     Indication: PULMONARY ARTERIAL HYPERTENSION
     Dosage: 1000 MCG, BID
     Route: 048
  2. TADALAFIL. [Concomitant]
     Active Substance: TADALAFIL
  3. WARFARIN [Concomitant]
     Active Substance: WARFARIN

REACTIONS (14)
  - Renal disorder [Unknown]
  - Blood glucose increased [Unknown]
  - Asthenia [Unknown]
  - Fatigue [Unknown]
  - Memory impairment [Unknown]
  - Rectal haemorrhage [Unknown]
  - Wrong dose [Unknown]
  - Blood pressure increased [Unknown]
  - Dizziness [Unknown]
  - Syncope [Unknown]
  - Cardiac disorder [Unknown]
  - Lung disorder [Unknown]
  - Dialysis [Unknown]
  - Hospitalisation [Unknown]
